FAERS Safety Report 15015493 (Version 1)
Quarter: 2018Q2

REPORT INFORMATION
  Report Type: Spontaneous
  Country: US (occurrence: US)
  Receive Date: 20180615
  Receipt Date: 20180615
  Transmission Date: 20180711
  Serious: Yes (Hospitalization)
  Sender: FDA-Public Use
  Company Number: US-LPDUSPRD-20181021

PATIENT
  Age: 51 Year
  Sex: Male

DRUGS (20)
  1. METHYLPREDNISOLONE. [Suspect]
     Active Substance: METHYLPREDNISOLONE
     Dosage: 1000 MG DAILY
     Route: 065
     Dates: start: 2015
  2. PERAMPANEL [Suspect]
     Active Substance: PERAMPANEL
     Dosage: 12 MG DAILY
     Route: 065
     Dates: start: 2015
  3. PHENYTOIN. [Concomitant]
     Active Substance: PHENYTOIN
     Dosage: 300 MG TWICE DAILY
     Route: 048
     Dates: start: 2015
  4. PENTOBARBITAL. [Suspect]
     Active Substance: PENTOBARBITAL
     Dosage: UNKNOWN
     Route: 065
     Dates: start: 201503, end: 2015
  5. LEVETIRACETAM INJECTION (0517-3605-01) [Suspect]
     Active Substance: LEVETIRACETAM
     Dosage: 4000 MG
     Route: 065
     Dates: start: 201503, end: 201503
  6. ZONISAMIDE. [Suspect]
     Active Substance: ZONISAMIDE
     Dosage: 200 MG DAILY
     Route: 065
     Dates: start: 2015
  7. ALLOPREGNANOLONE [Suspect]
     Active Substance: BREXANOLONE
     Dosage: UNKNOWN
     Route: 065
     Dates: start: 2015
  8. LORAZEPAM. [Suspect]
     Active Substance: LORAZEPAM
     Dosage: 5 MG
     Route: 065
     Dates: start: 201503
  9. LEVETIRACETAM. [Concomitant]
     Active Substance: LEVETIRACETAM
     Dosage: 1000MG TWICE DAILY
     Route: 048
     Dates: start: 2015
  10. TOPIRAMATE. [Suspect]
     Active Substance: TOPIRAMATE
     Dosage: UNKNOWN
     Route: 065
     Dates: start: 201503
  11. PHENYTOIN SODIUM INJECTION (40042-009-02) [Suspect]
     Active Substance: PHENYTOIN SODIUM
     Dosage: 800 MG
     Route: 065
     Dates: start: 201503, end: 201503
  12. KETAMINE [Suspect]
     Active Substance: KETAMINE
     Dosage: 13,586 MG DAILY
     Route: 065
     Dates: start: 2015
  13. LACOSAMIDE. [Concomitant]
     Active Substance: LACOSAMIDE
     Dosage: 100 MG TWICE DAILY
     Route: 048
     Dates: start: 2015
  14. CLOBAZAM [Concomitant]
     Active Substance: CLOBAZAM
     Dosage: MAXIMUM DAILY DOSE OF 30
     Route: 065
     Dates: start: 2015, end: 2015
  15. LACOSAMIDE. [Suspect]
     Active Substance: LACOSAMIDE
     Dosage: 400 MG
     Route: 065
     Dates: start: 201503, end: 201503
  16. VALPROIC ACID. [Suspect]
     Active Substance: VALPROIC ACID
     Dosage: UNKNOWN
     Route: 065
     Dates: start: 201503
  17. CARBAMAZEPINE. [Suspect]
     Active Substance: CARBAMAZEPINE
     Dosage: 1800 MG DAILY
     Route: 065
     Dates: start: 2015
  18. FOSPHENYTOIN [Concomitant]
     Active Substance: FOSPHENYTOIN\FOSPHENYTOIN SODIUM
     Dosage: MAXIMUM DAILY DOSE OF 975
     Route: 065
     Dates: start: 2015, end: 2015
  19. MIDAZOLAM [Suspect]
     Active Substance: MIDAZOLAM HYDROCHLORIDE
     Dosage: UNKNOWN
     Route: 065
     Dates: start: 201503, end: 201503
  20. FELBAMATE. [Suspect]
     Active Substance: FELBAMATE
     Dosage: 2800 MG DAILY
     Route: 065
     Dates: start: 2015

REACTIONS (3)
  - Status epilepticus [Recovered/Resolved]
  - Drug resistance [Recovered/Resolved]
  - Overdose [Unknown]

NARRATIVE: CASE EVENT DATE: 201503
